FAERS Safety Report 8380942-5 (Version None)
Quarter: 2012Q2

REPORT INFORMATION
  Report Type: 
  Country: None (occurrence: None)
  Receive Date: 20120523
  Receipt Date: 20120517
  Transmission Date: 20120825
  Serious: Yes (Other)
  Sender: FDA-Public Use
  Company Number: US-TEVA-228017USA

PATIENT
  Sex: Female

DRUGS (10)
  1. OXYGEN [Suspect]
     Indication: HEADACHE
     Dosage: PRN
  2. PROCHLORPERAZINE EDISYLATE [Concomitant]
     Dosage: UNKNOWN
  3. CYCLOBENZAPRINE HCL [Concomitant]
     Dosage: UNKNOWN
  4. LORAZEPAM [Concomitant]
     Dosage: UNKNOWN
  5. ZOLMITRIPTAN [Concomitant]
     Dosage: UNKNOWN
  6. COPAXONE [Suspect]
     Indication: MULTIPLE SCLEROSIS
     Route: 058
     Dates: start: 20070901, end: 20071001
  7. PROCHLORPERAZINE [Concomitant]
     Dosage: UNKNOWN
  8. CITALOPRAM HYDROBROMIDE [Concomitant]
     Dosage: UNKNOWN
  9. KELNOR 1/35 [Concomitant]
     Dosage: UNKNOWN
  10. VERAPAMIL [Concomitant]
     Dosage: UNKNOWN

REACTIONS (5)
  - HYPOTENSION [None]
  - FAECAL INCONTINENCE [None]
  - ERYTHEMA [None]
  - ANAPHYLACTIC REACTION [None]
  - URINARY INCONTINENCE [None]
